FAERS Safety Report 21674202 (Version 1)
Quarter: 2022Q4

REPORT INFORMATION
  Report Type: Spontaneous
  Country: US (occurrence: None)
  Receive Date: 20221201
  Receipt Date: 20221201
  Transmission Date: 20230113
  Serious: No
  Sender: FDA-Public Use
  Company Number: None

PATIENT
  Age: 60 Year

DRUGS (1)
  1. RELPAX [Suspect]
     Active Substance: ELETRIPTAN HYDROBROMIDE

REACTIONS (3)
  - Feeling abnormal [None]
  - Dysgeusia [None]
  - Product after taste [None]

NARRATIVE: CASE EVENT DATE: 20221201
